FAERS Safety Report 11866692 (Version 2)
Quarter: 2016Q1

REPORT INFORMATION
  Report Type: Spontaneous
  Country: BE (occurrence: BE)
  Receive Date: 20151224
  Receipt Date: 20160111
  Transmission Date: 20160526
  Serious: No
  Sender: FDA-Public Use
  Company Number: BE-ROCHE-1681406

PATIENT
  Sex: Female
  Weight: 70 kg

DRUGS (4)
  1. INTRON A [Suspect]
     Active Substance: INTERFERON ALFA-2B
     Indication: HISTIOCYTOSIS
     Route: 065
  2. NOLVADEX [Concomitant]
     Active Substance: TAMOXIFEN CITRATE
     Indication: HER-2 POSITIVE BREAST CANCER
     Dosage: MORNING
     Route: 065
  3. PEGASYS [Suspect]
     Active Substance: PEGINTERFERON ALFA-2A
     Indication: HISTIOCYTOSIS
     Dosage: 135 MICROGM / 0.5 ML
     Route: 058
  4. PARACETAMOL [Concomitant]
     Active Substance: ACETAMINOPHEN
     Dosage: IF NECCESSARY
     Route: 065

REACTIONS (5)
  - Off label use [Unknown]
  - Neutrophil count decreased [Unknown]
  - Weight decreased [Unknown]
  - Disease progression [Unknown]
  - Depression [Unknown]
